FAERS Safety Report 5728765-7 (Version None)
Quarter: 2008Q2

REPORT INFORMATION
  Report Type: 
  Country: None (occurrence: None)
  Receive Date: 20080506
  Receipt Date: 20080506
  Transmission Date: 20081010
  Serious: Yes (Life-Threatening, Hospitalization, Other)
  Sender: FDA-Public Use
  Company Number: B0518687A

PATIENT
  Age: 56 Year
  Sex: Female

DRUGS (1)
  1. SUPACEF [Suspect]
     Dosage: 1.5G SINGLE DOSE
     Route: 042
     Dates: start: 20070913, end: 20070913

REACTIONS (3)
  - ANAPHYLACTIC SHOCK [None]
  - CIRCULATORY COLLAPSE [None]
  - PHARMACEUTICAL PRODUCT COMPLAINT [None]
